FAERS Safety Report 19806540 (Version 7)
Quarter: 2022Q2

REPORT INFORMATION
  Report Type: Report from Study
  Country: AR (occurrence: AR)
  Receive Date: 20210908
  Receipt Date: 20220620
  Transmission Date: 20220720
  Serious: Yes (Hospitalization, Other)
  Sender: FDA-Public Use
  Company Number: AR-TAKEDA-AR201828605

PATIENT
  Age: 6 Year
  Sex: Male
  Weight: 26 kg

DRUGS (5)
  1. IDURSULFASE [Suspect]
     Active Substance: IDURSULFASE
     Indication: Mucopolysaccharidosis II
     Dosage: 2 DOSAGE FORM, 1/WEEK
     Route: 042
     Dates: start: 20151201
  2. IDURSULFASE [Suspect]
     Active Substance: IDURSULFASE
     Dosage: 12 MILLIGRAM, 1/WEEK
     Route: 065
     Dates: start: 20180621
  3. IDURSULFASE [Suspect]
     Active Substance: IDURSULFASE
     Dosage: 2 MILLIGRAM, 1/WEEK
     Route: 042
  4. IDURSULFASE [Suspect]
     Active Substance: IDURSULFASE
     Dosage: 12 MILLIGRAM, 1/WEEK
     Route: 042
     Dates: start: 20151201
  5. DIPHENHYDRAMINE [Concomitant]
     Active Substance: DIPHENHYDRAMINE
     Indication: Premedication
     Dosage: UNK
     Route: 050

REACTIONS (14)
  - Respiratory disorder [Recovered/Resolved]
  - Femur fracture [Not Recovered/Not Resolved]
  - Unevaluable event [Recovering/Resolving]
  - Device dislocation [Recovered/Resolved]
  - Bronchitis [Recovered/Resolved]
  - Urticaria [Recovered/Resolved]
  - Injection site inflammation [Recovered/Resolved]
  - Injection site extravasation [Recovered/Resolved]
  - Increased bronchial secretion [Recovering/Resolving]
  - Decreased bronchial secretion [Recovering/Resolving]
  - Bronchospasm [Recovering/Resolving]
  - Pyrexia [Recovered/Resolved]
  - Product dose omission issue [Recovered/Resolved]
  - Inappropriate schedule of product administration [Unknown]

NARRATIVE: CASE EVENT DATE: 20180713
